FAERS Safety Report 11767605 (Version 1)
Quarter: 2015Q4

REPORT INFORMATION
  Report Type: Spontaneous
  Country: US (occurrence: None)
  Receive Date: 20151120
  Receipt Date: 20151120
  Transmission Date: 20160304
  Serious: Yes (Hospitalization)
  Sender: FDA-Public Use
  Company Number: None

PATIENT
  Age: 34 Year
  Sex: Female
  Weight: 70.6 kg

DRUGS (3)
  1. SYNTHROID [Concomitant]
     Active Substance: LEVOTHYROXINE SODIUM
  2. INVOKANA [Suspect]
     Active Substance: CANAGLIFLOZIN
     Indication: TYPE 1 DIABETES MELLITUS
     Route: 048
     Dates: start: 20150301, end: 20150310
  3. APIDRA [Concomitant]
     Active Substance: INSULIN GLULISINE

REACTIONS (3)
  - Abdominal pain [None]
  - Diabetic ketoacidosis [None]
  - Blood ketone body increased [None]

NARRATIVE: CASE EVENT DATE: 20151110
